FAERS Safety Report 9863559 (Version 2)
Quarter: 2014Q1

REPORT INFORMATION
  Report Type: Spontaneous
  Country: IT (occurrence: IT)
  Receive Date: 20140203
  Receipt Date: 20140213
  Transmission Date: 20141002
  Serious: Yes (Hospitalization)
  Sender: FDA-Public Use
  Company Number: IT-BAYER-2014-013962

PATIENT
  Age: 65 Year
  Sex: Male

DRUGS (3)
  1. NEXAVAR [Suspect]
     Indication: RENAL CANCER METASTATIC
     Dosage: DAILY DOSE 800 MG
     Route: 048
     Dates: start: 20131002, end: 20131229
  2. NEXAVAR [Suspect]
     Indication: RENAL CANCER METASTATIC
     Dosage: DAILY DOSE 400 MG
     Route: 048
     Dates: start: 20140123, end: 201402
  3. NEXAVAR [Suspect]
     Indication: RENAL CANCER METASTATIC
     Dosage: DAILY DOSE 800 MG
     Route: 048
     Dates: start: 201402

REACTIONS (1)
  - Peripheral artery aneurysm [Recovered/Resolved]
